FAERS Safety Report 7669380-8 (Version None)
Quarter: 2011Q3

REPORT INFORMATION
  Report Type: 
  Country: None (occurrence: None)
  Receive Date: 20110808
  Receipt Date: 20110727
  Transmission Date: 20111222
  Serious: Yes (Life-Threatening, Hospitalization)
  Sender: FDA-Public Use
  Company Number: PL-ROCHE-793072

PATIENT
  Sex: Male
  Weight: 93 kg

DRUGS (2)
  1. COPEGUS [Suspect]
     Indication: HEPATITIS C
     Dosage: DRUG ROUTE AND FREQUENCY NOT REPORTED
     Route: 065
  2. PEGASYS [Suspect]
     Indication: HEPATITIS C
     Dosage: DRUG ROUTE AND FREQUENCY NOT REPORTED
     Route: 065

REACTIONS (5)
  - PYREXIA [None]
  - ALTERED STATE OF CONSCIOUSNESS [None]
  - RESPIRATORY FAILURE [None]
  - VOMITING [None]
  - BREATH SOUNDS ABNORMAL [None]
